FAERS Safety Report 11047103 (Version 1)
Quarter: 2015Q2

REPORT INFORMATION
  Report Type: Spontaneous
  Country: US (occurrence: None)
  Receive Date: 20150417
  Receipt Date: 20150417
  Transmission Date: 20150821
  Serious: No
  Sender: FDA-Public Use
  Company Number: None

PATIENT
  Age: 57 Year
  Sex: Female

DRUGS (1)
  1. HUMIRA [Suspect]
     Active Substance: ADALIMUMAB
     Indication: RHEUMATOID ARTHRITIS
     Dosage: 40MG, EVERY 2 WEEKS, SUBCUTANEOUSLY
     Route: 058
     Dates: start: 20150302

REACTIONS (3)
  - Back pain [None]
  - Vision blurred [None]
  - Mobility decreased [None]

NARRATIVE: CASE EVENT DATE: 20150403
